FAERS Safety Report 6366490-2 (Version None)
Quarter: 2009Q3

REPORT INFORMATION
  Report Type: 
  Country: None (occurrence: None)
  Receive Date: 20090921
  Receipt Date: 20090909
  Transmission Date: 20100115
  Serious: Yes (Other)
  Sender: FDA-Public Use
  Company Number: PL-ROCHE-655769

PATIENT
  Sex: Male

DRUGS (1)
  1. ROACCUTANE [Suspect]
     Indication: DRUG USE FOR UNKNOWN INDICATION
     Dosage: START DATE: SECOND HALF OF 2004
     Route: 065
     Dates: start: 20040101

REACTIONS (2)
  - NERVOUS SYSTEM DISORDER [None]
  - RAYNAUD'S PHENOMENON [None]
